FAERS Safety Report 25233257 (Version 1)
Quarter: 2025Q2

REPORT INFORMATION
  Report Type: Spontaneous
  Country: US (occurrence: US)
  Receive Date: 20250424
  Receipt Date: 20250424
  Transmission Date: 20250717
  Serious: Yes (Death, Life-Threatening, Hospitalization, Other)
  Sender: ELI LILLY AND COMPANY
  Company Number: US-ELI_LILLY_AND_COMPANY-US202504018983

PATIENT
  Age: 64 Year
  Sex: Male

DRUGS (5)
  1. TIRZEPATIDE [Interacting]
     Active Substance: TIRZEPATIDE
     Indication: Type 2 diabetes mellitus
     Dosage: 7.5 MG, WEEKLY (1/W)
     Route: 065
  2. TIRZEPATIDE [Interacting]
     Active Substance: TIRZEPATIDE
     Dosage: 10 MG, WEEKLY (1/W)
     Route: 065
  3. WARFARIN [Interacting]
     Active Substance: WARFARIN
     Indication: Deep vein thrombosis
     Route: 065
  4. AMLODIPINE [Concomitant]
     Active Substance: AMLODIPINE BESYLATE
     Indication: Hypertension
     Route: 065
  5. METFORMIN [Concomitant]
     Active Substance: METFORMIN HYDROCHLORIDE
     Indication: Type 2 diabetes mellitus
     Route: 065

REACTIONS (13)
  - Pulmonary haemorrhage [Fatal]
  - Anti-neutrophil cytoplasmic antibody positive vasculitis [Fatal]
  - Acute kidney injury [Fatal]
  - Status epilepticus [Unknown]
  - International normalised ratio increased [Recovered/Resolved]
  - Seizure [Unknown]
  - Subdural haematoma [Unknown]
  - Atrial fibrillation [Unknown]
  - Azotaemia [Unknown]
  - Anaemia [Unknown]
  - Conjunctival haemorrhage [Unknown]
  - Sinus tachycardia [Unknown]
  - Drug interaction [Unknown]
